FAERS Safety Report 10396893 (Version 3)
Quarter: 2014Q3

REPORT INFORMATION
  Report Type: Report from Study
  Country: CA (occurrence: CA)
  Receive Date: 20140820
  Receipt Date: 20140911
  Transmission Date: 20150326
  Serious: Yes (Hospitalization)
  Sender: FDA-Public Use
  Company Number: CA-ABBVIE-14P-028-1273186-00

PATIENT
  Sex: Male
  Weight: 99.88 kg

DRUGS (2)
  1. SALICYLIC ACID [Concomitant]
     Active Substance: SALICYLIC ACID
     Indication: PRODUCT USED FOR UNKNOWN INDICATION
  2. LUPRON DEPOT [Suspect]
     Active Substance: LEUPROLIDE ACETATE
     Indication: PROSTATE CANCER
     Route: 030
     Dates: start: 20080521

REACTIONS (4)
  - Skin ulcer [Unknown]
  - Fall [Unknown]
  - Pneumonia [Unknown]
  - Gait disturbance [Unknown]
